FAERS Safety Report 4932215-8 (Version None)
Quarter: 2006Q1

REPORT INFORMATION
  Report Type: 
  Country: None (occurrence: None)
  Receive Date: 20060228
  Receipt Date: 20060217
  Transmission Date: 20060701
  Serious: Yes (Hospitalization)
  Sender: FDA-Public Use
  Company Number: 2006011054

PATIENT
  Age: 79 Year
  Sex: Male

DRUGS (7)
  1. ALDACTONE [Suspect]
     Indication: CARDIAC FAILURE
     Dosage: 50 MG (50 MG, QD), ORAL
     Route: 048
     Dates: start: 20040301, end: 20050723
  2. ALDACTONE [Suspect]
     Indication: VENTRICULAR DYSFUNCTION
     Dosage: 50 MG (50 MG, QD), ORAL
     Route: 048
     Dates: start: 20040301, end: 20050723
  3. DIOVAN [Suspect]
     Indication: HYPERTENSION
     Dosage: 80 MG (80 MG, QD), ORAL
     Route: 048
     Dates: start: 20050701, end: 20050723
  4. BAYASPIRIN (ACETYSALICYLIC ACID) [Concomitant]
  5. WARFARIN SODIUM [Concomitant]
  6. FAMOTIDINE [Concomitant]
  7. SIGMART (NICORANDIL) [Concomitant]

REACTIONS (11)
  - BRADYARRHYTHMIA [None]
  - BRADYCARDIA [None]
  - CHILLS [None]
  - COLD SWEAT [None]
  - DEHYDRATION [None]
  - DEPRESSED LEVEL OF CONSCIOUSNESS [None]
  - DIZZINESS [None]
  - HAEMODIALYSIS [None]
  - HYPERKALAEMIA [None]
  - RENAL IMPAIRMENT [None]
  - SHOCK [None]
